FAERS Safety Report 17435095 (Version 1)
Quarter: 2020Q1

REPORT INFORMATION
  Report Type: Spontaneous
  Country: PL (occurrence: PL)
  Receive Date: 20200219
  Receipt Date: 20200219
  Transmission Date: 20200409
  Serious: Yes (Other)
  Sender: FDA-Public Use
  Company Number: PL-MYLANLABS-2020M1016809

PATIENT
  Age: 75 Year
  Sex: Female

DRUGS (1)
  1. GOPTEN 2 MG [Suspect]
     Active Substance: TRANDOLAPRIL
     Indication: HYPERTENSION
     Dosage: ONE TABLET A DAY
     Dates: start: 20190516, end: 20190523

REACTIONS (7)
  - Oedema peripheral [Recovering/Resolving]
  - Hypoaesthesia [Recovering/Resolving]
  - Urinary retention [Recovering/Resolving]
  - Tinnitus [Recovering/Resolving]
  - Angina pectoris [Recovering/Resolving]
  - Cough [Recovering/Resolving]
  - Hyperhidrosis [Recovering/Resolving]

NARRATIVE: CASE EVENT DATE: 20190516
